FAERS Safety Report 17430927 (Version 1)
Quarter: 2020Q1

REPORT INFORMATION
  Report Type: Spontaneous
  Country: US (occurrence: US)
  Receive Date: 20200217
  Receipt Date: 20200217
  Transmission Date: 20200409
  Serious: Yes (Hospitalization)
  Sender: FDA-Public Use
  Company Number: None

PATIENT
  Age: 31 Year
  Sex: Female

DRUGS (2)
  1. MAVYRET [Concomitant]
     Active Substance: GLECAPREVIR\PIBRENTASVIR
  2. SILDENAFIL. [Suspect]
     Active Substance: SILDENAFIL
     Indication: RAYNAUD^S PHENOMENON
     Route: 048
     Dates: start: 20190213

REACTIONS (1)
  - Catheterisation cardiac [None]

NARRATIVE: CASE EVENT DATE: 20200207
